FAERS Safety Report 8892953 (Version 1)
Quarter: 2012Q4

REPORT INFORMATION
  Report Type: 
  Country: US (occurrence: US)
  Receive Date: 20121107
  Receipt Date: 20121107
  Transmission Date: 20130627
  Serious: No
  Sender: FDA-Public Use
  Company Number: US-AMGEN-USASP2011061097

PATIENT
  Age: 23 Year
  Sex: Male

DRUGS (2)
  1. ENBREL [Suspect]
     Indication: PSORIATIC ARTHROPATHY
     Dosage: 50 mg, qwk
     Dates: start: 20110501
  2. METHOTREXATE /00113802/ [Concomitant]
     Dosage: 1 mg, qwk
     Dates: start: 201102

REACTIONS (1)
  - Dry skin [Not Recovered/Not Resolved]
